FAERS Safety Report 20698303 (Version 1)
Quarter: 2022Q2

REPORT INFORMATION
  Report Type: Report from Study
  Country: JP (occurrence: JP)
  Receive Date: 20220412
  Receipt Date: 20220412
  Transmission Date: 20220720
  Serious: Yes (Death, Hospitalization, Other)
  Sender: FDA-Public Use
  Company Number: JP-BRISTOL-MYERS SQUIBB COMPANY-2022-016626

PATIENT
  Age: 64 Year
  Sex: Male
  Weight: 67.4 kg

DRUGS (18)
  1. YERVOY [Suspect]
     Active Substance: IPILIMUMAB
     Indication: Metastatic renal cell carcinoma
     Route: 041
     Dates: start: 20210107, end: 20210107
  2. YERVOY [Suspect]
     Active Substance: IPILIMUMAB
     Route: 041
     Dates: start: 20210128, end: 20210128
  3. YERVOY [Suspect]
     Active Substance: IPILIMUMAB
     Route: 041
     Dates: start: 20210218, end: 20210218
  4. YERVOY [Suspect]
     Active Substance: IPILIMUMAB
     Route: 041
     Dates: start: 20210311, end: 20210311
  5. OPDIVO [Suspect]
     Active Substance: NIVOLUMAB
     Indication: Metastatic renal cell carcinoma
     Dosage: 240MG/BODY
     Route: 041
     Dates: start: 20210107, end: 20210107
  6. OPDIVO [Suspect]
     Active Substance: NIVOLUMAB
     Dosage: 240MG/BODY
     Route: 041
     Dates: start: 20210128, end: 20210128
  7. OPDIVO [Suspect]
     Active Substance: NIVOLUMAB
     Dosage: 240MG/BODY
     Route: 041
     Dates: start: 20210218, end: 20210218
  8. OPDIVO [Suspect]
     Active Substance: NIVOLUMAB
     Dosage: 240MG/BODY
     Route: 041
     Dates: start: 20210311, end: 20210311
  9. DECADRON [Concomitant]
     Active Substance: DEXAMETHASONE
     Indication: Hepatitis
     Route: 048
     Dates: start: 20210319, end: 20210319
  10. DEXAMETHASONE SODIUM PHOSPHATE [Concomitant]
     Active Substance: DEXAMETHASONE SODIUM PHOSPHATE
     Indication: Hepatitis
     Route: 042
     Dates: start: 20210318, end: 20210318
  11. RINDERON [Concomitant]
     Indication: Hepatitis
     Route: 042
     Dates: start: 20210319, end: 20210319
  12. RINDERON [Concomitant]
     Route: 042
     Dates: start: 20210320, end: 20210405
  13. RINDERON [Concomitant]
     Route: 042
     Dates: start: 20210406, end: 20210414
  14. RINDERON [Concomitant]
     Route: 042
     Dates: start: 20210415, end: 20210416
  15. CELLCEPT [Concomitant]
     Active Substance: MYCOPHENOLATE MOFETIL
     Indication: Liver transplant
     Route: 048
     Dates: start: 20210322, end: 20210328
  16. STRONGER NEO-MINOPHAGEN C [Concomitant]
     Active Substance: AMMONIUM GLYCYRRHIZATE\CYSTEINE HYDROCHLORIDE\GLYCINE
     Indication: Hepatic function abnormal
     Route: 042
     Dates: start: 20210319, end: 20210402
  17. MENATETRENONE [Concomitant]
     Active Substance: MENATETRENONE
     Indication: Biliary obstruction
     Route: 042
     Dates: start: 20210323, end: 20210405
  18. THROMBOMODULIN ALFA [Concomitant]
     Active Substance: THROMBOMODULIN ALFA
     Indication: Disseminated intravascular coagulation
     Route: 042
     Dates: start: 20210409, end: 20210415

REACTIONS (2)
  - Malaise [Not Recovered/Not Resolved]
  - Hepatitis [Fatal]

NARRATIVE: CASE EVENT DATE: 20210315
